FAERS Safety Report 6223598-X (Version None)
Quarter: 2009Q2

REPORT INFORMATION
  Report Type: 
  Country: None (occurrence: None)
  Receive Date: 20090610
  Receipt Date: 20090602
  Transmission Date: 20091009
  Serious: Yes (Hospitalization)
  Sender: FDA-Public Use
  Company Number: 2009SP012083

PATIENT
  Age: 45 Year
  Sex: Male

DRUGS (2)
  1. RIBAVIRIN [Suspect]
     Indication: HEPATITIS C
     Dosage: 400 MG; BID;
  2. PEGYLATED INTERFERON 2A (PEGINTERFERON ALFA-2A) [Suspect]
     Indication: HEPATITIS C
     Dosage: 100 MCG; QW;

REACTIONS (10)
  - AGITATION [None]
  - DECREASED APPETITE [None]
  - HEART RATE INCREASED [None]
  - INAPPROPRIATE AFFECT [None]
  - IRRITABILITY [None]
  - MANIA [None]
  - PARANOIA [None]
  - SLEEP DISORDER [None]
  - WEIGHT DECREASED [None]
  - WITHDRAWAL SYNDROME [None]
